FAERS Safety Report 16833000 (Version 4)
Quarter: 2020Q1

REPORT INFORMATION
  Report Type: Report from Study
  Country: CA (occurrence: CA)
  Receive Date: 20190920
  Receipt Date: 20200204
  Transmission Date: 20200409
  Serious: Yes (Death)
  Sender: FDA-Public Use
  Company Number: CA-PFIZER INC-2019400544

PATIENT

DRUGS (9)
  1. FLUOROURACIL. [Suspect]
     Active Substance: FLUOROURACIL
     Indication: NEOPLASM MALIGNANT
     Dosage: 300.0 MG/M2, AT 16 HOURS
     Route: 065
  2. VINCRISTINE SULFATE. [Suspect]
     Active Substance: VINCRISTINE SULFATE
     Indication: NEOPLASM MALIGNANT
     Dosage: 1.0 MG/M2, AT 16 HOURS
  3. CALCIUM FOLINATE [Suspect]
     Active Substance: LEUCOVORIN CALCIUM
     Indication: NEOPLASM MALIGNANT
     Dosage: 60.0 MG/M2, AT 24 HOURS
     Route: 042
  4. CALCIUM FOLINATE [Suspect]
     Active Substance: LEUCOVORIN CALCIUM
     Dosage: 15.0 MG/M2, EVERY 8 HOURS (X 8 DOSES)
     Route: 042
  5. HYDROXYUREA. [Suspect]
     Active Substance: HYDROXYUREA
     Indication: NEOPLASM MALIGNANT
     Dosage: 1 G/M2 AT 0 HOURS
     Route: 048
  6. METHOTREXATE SODIUM. [Suspect]
     Active Substance: METHOTREXATE SODIUM
     Dosage: 400.0 MG/M2, AT 8-16 HOURS
     Route: 042
  7. CALCIUM FOLINATE [Suspect]
     Active Substance: LEUCOVORIN CALCIUM
     Dosage: 60.0 MG/M2, AT 24-32 HOURS
     Route: 042
  8. BLEOMYCIN SULFATE [Suspect]
     Active Substance: BLEOMYCIN SULFATE
     Indication: NEOPLASM MALIGNANT
     Dosage: 30 U, AT 20-24 HOURS
     Route: 042
  9. METHOTREXATE SODIUM. [Suspect]
     Active Substance: METHOTREXATE SODIUM
     Dosage: 200.0 MG/M2, AT 8 HOURS
     Route: 042

REACTIONS (3)
  - Blood creatinine increased [Fatal]
  - Infection [Fatal]
  - Bone marrow failure [Fatal]
